FAERS Safety Report 4996749-2 (Version None)
Quarter: 2006Q2

REPORT INFORMATION
  Report Type: 
  Country: None (occurrence: None)
  Receive Date: 20060509
  Receipt Date: 20060209
  Transmission Date: 20061013
  Serious: Yes (Hospitalization)
  Sender: FDA-Public Use
  Company Number: US-MERCK-0602USA02452

PATIENT
  Age: 81 Year
  Sex: Female
  Weight: 66 kg

DRUGS (6)
  1. VIOXX [Suspect]
     Indication: ARTHRITIS
     Route: 048
     Dates: start: 20010501, end: 20040201
  2. METFORMIN [Concomitant]
     Route: 065
  3. CENTRUM [Concomitant]
     Route: 065
  4. ZOCOR [Concomitant]
     Route: 048
  5. REGLAN [Concomitant]
     Route: 065
  6. LABETALOL HYDROCHLORIDE [Concomitant]
     Route: 065

REACTIONS (1)
  - CEREBROVASCULAR ACCIDENT [None]
